FAERS Safety Report 11402139 (Version 1)
Quarter: 2015Q3

REPORT INFORMATION
  Report Type: Spontaneous
  Country: US (occurrence: US)
  Receive Date: 20150821
  Receipt Date: 20150821
  Transmission Date: 20151125
  Serious: No
  Sender: FDA-Public Use
  Company Number: US-ROCHE-1285972

PATIENT
  Sex: Female

DRUGS (5)
  1. PEGASYS [Suspect]
     Active Substance: PEGINTERFERON ALFA-2A
     Indication: CHRONIC HEPATITIS C
     Dosage: PROCLICK
     Route: 058
     Dates: start: 20131008
  2. RIBAVIRIN. [Suspect]
     Active Substance: RIBAVIRIN
     Indication: CHRONIC HEPATITIS C
     Dosage: DIVEIDED DOSES 600/600
     Route: 048
     Dates: start: 20131008
  3. PEGASYS [Suspect]
     Active Substance: PEGINTERFERON ALFA-2A
     Dosage: 8 YEARS AGO
     Route: 065
  4. RIBAVIRIN. [Suspect]
     Active Substance: RIBAVIRIN
     Dosage: 8 YEARS AGO
     Route: 065
  5. PREVACID [Concomitant]
     Active Substance: LANSOPRAZOLE

REACTIONS (9)
  - Alopecia [Recovered/Resolved]
  - Lethargy [Unknown]
  - Fatigue [Recovered/Resolved]
  - Alopecia [Unknown]
  - Tongue dry [Unknown]
  - Muscle spasms [Recovered/Resolved]
  - Muscle spasms [Unknown]
  - Mania [Unknown]
  - Influenza like illness [Unknown]
